FAERS Safety Report 5742742-1 (Version None)
Quarter: 2008Q2

REPORT INFORMATION
  Report Type: 
  Country: None (occurrence: None)
  Receive Date: 20080519
  Receipt Date: 20080506
  Transmission Date: 20081010
  Serious: Yes (Death)
  Sender: FDA-Public Use
  Company Number: US-ROCHE-558926

PATIENT
  Sex: Male

DRUGS (2)
  1. VALGANCICLOVIR HCL [Suspect]
     Indication: CYTOMEGALOVIRUS INFECTION
     Route: 048
     Dates: start: 20070527, end: 20080210
  2. CAMPATH [Concomitant]

REACTIONS (1)
  - PROLYMPHOCYTIC LEUKAEMIA [None]
